FAERS Safety Report 5259478-6 (Version None)
Quarter: 2007Q1

REPORT INFORMATION
  Report Type: 
  Country: None (occurrence: None)
  Receive Date: 20070305
  Receipt Date: 20070226
  Transmission Date: 20070707
  Serious: Yes (Death)
  Sender: FDA-Public Use
  Company Number: 237464

PATIENT
  Sex: 0

DRUGS (1)
  1. LUCENTIS [Suspect]

REACTIONS (1)
  - CEREBROVASCULAR ACCIDENT [None]
